FAERS Safety Report 19013183 (Version 1)
Quarter: 2021Q1

REPORT INFORMATION
  Report Type: Spontaneous
  Country: US (occurrence: US)
  Receive Date: 20210316
  Receipt Date: 20210316
  Transmission Date: 20210420
  Serious: No
  Sender: FDA-Public Use
  Company Number: US-ASTRAZENECA-2021A128066

PATIENT
  Age: 72 Year
  Sex: Female

DRUGS (3)
  1. PHENOBARBITAL. [Suspect]
     Active Substance: PHENOBARBITAL
     Dosage: UNKNOWN
     Route: 065
  2. OMEPRAZOLE. [Suspect]
     Active Substance: OMEPRAZOLE
     Dosage: UNKNOWN
     Route: 048
  3. PEPCID [Suspect]
     Active Substance: FAMOTIDINE
     Dosage: UNKNOWN
     Route: 065

REACTIONS (6)
  - Pain [Unknown]
  - Peripheral swelling [Unknown]
  - Rash [Unknown]
  - Skin ulcer [Unknown]
  - Joint swelling [Unknown]
  - Scab [Unknown]
